FAERS Safety Report 5082492-0 (Version None)
Quarter: 2006Q3

REPORT INFORMATION
  Report Type: 
  Country: None (occurrence: None)
  Receive Date: 20060814
  Receipt Date: 20060802
  Transmission Date: 20061208
  Serious: Yes (Other)
  Sender: FDA-Public Use
  Company Number: 2006095531

PATIENT
  Sex: Female
  Weight: 78.0187 kg

DRUGS (3)
  1. CORTEF [Suspect]
     Indication: BLOOD GLUCOSE
     Dosage: 20 MG (20 MG, 1 IN 1 D)
     Dates: start: 20050101
  2. ALL OTHER THERAPEUTIC PRODUCTS (ALL OTHER THERAPEUTIC PRODUCTS) [Concomitant]
  3. FOLIC ACID [Concomitant]

REACTIONS (1)
  - ANAEMIA [None]
